FAERS Safety Report 11812194 (Version 1)
Quarter: 2015Q4

REPORT INFORMATION
  Report Type: Spontaneous
  Country: US (occurrence: US)
  Receive Date: 20151208
  Receipt Date: 20151208
  Transmission Date: 20160305
  Serious: Yes (Other)
  Sender: FDA-Public Use
  Company Number: US-LPDUSPRD-20150109

PATIENT
  Sex: Female

DRUGS (1)
  1. VENOFER [Suspect]
     Active Substance: IRON SUCROSE
     Dosage: 400MG IN 250ML NS OVER 2 HRS
     Route: 042
     Dates: start: 20150122, end: 20150122

REACTIONS (5)
  - Back pain [Recovered/Resolved with Sequelae]
  - Off label use [Unknown]
  - Oedema [Unknown]
  - Pain in extremity [Recovered/Resolved with Sequelae]
  - Angioedema [Unknown]

NARRATIVE: CASE EVENT DATE: 20150122
